FAERS Safety Report 22620188 (Version 1)
Quarter: 2023Q2

REPORT INFORMATION
  Report Type: Spontaneous
  Country: FR (occurrence: FR)
  Receive Date: 20230620
  Receipt Date: 20230620
  Transmission Date: 20230722
  Serious: Yes (Death)
  Sender: FDA-Public Use
  Company Number: None

PATIENT
  Age: 51 Year
  Sex: Male

DRUGS (5)
  1. DIAZEPAM [Suspect]
     Active Substance: DIAZEPAM
     Indication: Product used for unknown indication
     Dates: end: 20220801
  2. COCAINE [Suspect]
     Active Substance: COCAINE
     Indication: Product used for unknown indication
     Dates: end: 20220801
  3. NORDAZEPAM [Suspect]
     Active Substance: NORDAZEPAM
     Indication: Product used for unknown indication
     Dates: end: 20220801
  4. COCAETHYLENE [Suspect]
     Active Substance: COCAETHYLENE
     Indication: Product used for unknown indication
     Dates: end: 20220801
  5. BENZOYLECGONINE [Suspect]
     Active Substance: BENZOYLECGONINE
     Indication: Product used for unknown indication
     Dates: end: 20220801

REACTIONS (2)
  - Drug abuse [Fatal]
  - Poisoning [Fatal]
